FAERS Safety Report 7958209-6 (Version None)
Quarter: 2011Q4

REPORT INFORMATION
  Report Type: 
  Country: None (occurrence: None)
  Receive Date: 20111205
  Receipt Date: 20111130
  Transmission Date: 20120403
  Serious: No
  Sender: FDA-Public Use
  Company Number: US-PFIZER INC-2011292172

PATIENT
  Age: 75 Year
  Sex: Male
  Weight: 81.633 kg

DRUGS (4)
  1. TRACLEER [Suspect]
     Dosage: UNK
  2. TYVASO [Suspect]
     Indication: PULMONARY ARTERIAL HYPERTENSION
     Dosage: 144 MCG (36MCG, 4 IN 1)
  3. COUMADIN [Concomitant]
     Dosage: UNK
  4. REVATIO [Suspect]
     Dosage: UNK

REACTIONS (6)
  - PAIN IN JAW [None]
  - COUGH [None]
  - PRURITUS [None]
  - DRY SKIN [None]
  - UPPER-AIRWAY COUGH SYNDROME [None]
  - TRISMUS [None]
